FAERS Safety Report 24553998 (Version 6)
Quarter: 2024Q4

REPORT INFORMATION
  Report Type: Report from Study
  Country: US (occurrence: US)
  Receive Date: 20241028
  Receipt Date: 20241230
  Transmission Date: 20250114
  Serious: Yes (Life-Threatening, Other)
  Sender: EXELIXIS
  Company Number: US-EXELIXIS-EXL-2024-000746

PATIENT
  Sex: Male

DRUGS (16)
  1. CABOMETYX [Suspect]
     Active Substance: CABOZANTINIB S-MALATE
     Indication: Renal cancer
     Dosage: 60 MG, QD
     Route: 048
  2. CABOMETYX [Suspect]
     Active Substance: CABOZANTINIB S-MALATE
     Dosage: 60 MG, QD
     Route: 048
     Dates: start: 20240927, end: 202410
  3. ZOMETA [Suspect]
     Active Substance: ZOLEDRONIC ACID
     Indication: Product used for unknown indication
     Dosage: UNK
  4. VITAMIN D [Concomitant]
     Active Substance: VITAMIN D NOS
  5. FOLIC ACID [Concomitant]
     Active Substance: FOLIC ACID
  6. IRON [Concomitant]
     Active Substance: IRON
  7. VITAMINS [Concomitant]
     Active Substance: VITAMINS
  8. OLMESARTAN MEDOXOMIL [Concomitant]
     Active Substance: OLMESARTAN MEDOXOMIL
  9. ONDANSETRON [Concomitant]
     Active Substance: ONDANSETRON
  10. OXYCODONE HYDROCHLORIDE [Concomitant]
     Active Substance: OXYCODONE HYDROCHLORIDE
  11. VITAMIN B12 [Concomitant]
     Active Substance: CYANOCOBALAMIN
  12. VITAMIN C [Concomitant]
     Active Substance: ASCORBIC ACID
  13. ELIQUIS [Concomitant]
     Active Substance: APIXABAN
  14. ZOLEDRONIC ACID [Concomitant]
     Active Substance: ZOLEDRONIC ACID
  15. GABAPENTIN [Concomitant]
     Active Substance: GABAPENTIN
  16. IMODIUM A-D [Concomitant]
     Active Substance: LOPERAMIDE HYDROCHLORIDE

REACTIONS (10)
  - Illness [Recovered/Resolved]
  - Mental impairment [Not Recovered/Not Resolved]
  - Radiotherapy [Unknown]
  - Gait inability [Recovered/Resolved]
  - Loss of personal independence in daily activities [Recovered/Resolved]
  - Fatigue [Not Recovered/Not Resolved]
  - Blood pressure increased [Recovered/Resolved]
  - Nausea [Not Recovered/Not Resolved]
  - Incoherent [Recovered/Resolved]
  - Pain [Not Recovered/Not Resolved]
